FAERS Safety Report 7688312-X (Version None)
Quarter: 2011Q3

REPORT INFORMATION
  Report Type: 
  Country: None (occurrence: None)
  Receive Date: 20110817
  Receipt Date: 20110812
  Transmission Date: 20111222
  Serious: Yes (Congenital Anomaly)
  Sender: FDA-Public Use
  Company Number: AU-PFIZER INC-2010138336

PATIENT

DRUGS (3)
  1. LYRICA [Suspect]
     Dosage: 75 MG, 2X/DAY
     Route: 050
  2. KEPPRA [Concomitant]
     Dosage: UNK
     Route: 050
  3. HYDROMORPHONE HYDROCHLORIDE [Concomitant]
     Dosage: UNK
     Route: 050

REACTIONS (2)
  - MATERNAL EXPOSURE DURING PREGNANCY [None]
  - HYPOSPADIAS [None]
